FAERS Safety Report 10272606 (Version 1)
Quarter: 2014Q2

REPORT INFORMATION
  Report Type: Spontaneous
  Country: US (occurrence: None)
  Receive Date: 20140630
  Receipt Date: 20140630
  Transmission Date: 20141212
  Serious: Yes (Other)
  Sender: FDA-Public Use
  Company Number: None

PATIENT
  Age: 4 Year
  Sex: Female
  Weight: 16.33 kg

DRUGS (2)
  1. MONTELUKAST SODIUM [Suspect]
     Indication: SEASONAL ALLERGY
     Route: 048
     Dates: start: 20140616, end: 20140626
  2. AMOXICILLIN [Concomitant]

REACTIONS (3)
  - Insomnia [None]
  - Anxiety [None]
  - Sleep terror [None]
